FAERS Safety Report 13290129 (Version 2)
Quarter: 2017Q1

REPORT INFORMATION
  Report Type: Spontaneous
  Country: US (occurrence: US)
  Receive Date: 20170302
  Receipt Date: 20170324
  Transmission Date: 20170428
  Serious: No
  Sender: FDA-Public Use
  Company Number: US-GLAXOSMITHKLINE-US2017028909

PATIENT
  Age: 77 Year
  Sex: Male

DRUGS (2)
  1. BREO ELLIPTA [Suspect]
     Active Substance: FLUTICASONE FUROATE\VILANTEROL TRIFENATATE
     Indication: PRODUCT USED FOR UNKNOWN INDICATION
     Dosage: 1 PUFF(S), 1D
     Route: 055
  2. IRON SUPPLEMENT [Concomitant]
     Active Substance: IRON
     Dosage: UNK

REACTIONS (1)
  - Oesophageal disorder [Unknown]

NARRATIVE: CASE EVENT DATE: 201611
